FAERS Safety Report 7640327-3 (Version None)
Quarter: 2011Q3

REPORT INFORMATION
  Report Type: 
  Country: None (occurrence: None)
  Receive Date: 20110728
  Receipt Date: 20110531
  Transmission Date: 20111222
  Serious: No
  Sender: FDA-Public Use
  Company Number: US-BAYER-2011-047531

PATIENT
  Age: 42 Year
  Sex: Female
  Weight: 56.689 kg

DRUGS (4)
  1. TOPAMAX [Concomitant]
  2. VALTREX [Concomitant]
  3. ALEVE (CAPLET) [Suspect]
     Indication: ARTHRITIS
     Dosage: 1 DF, PRN
     Route: 048
     Dates: start: 20010521, end: 20110524
  4. ESTROGEN NOS [Concomitant]

REACTIONS (1)
  - WHEEZING [None]
